FAERS Safety Report 22941193 (Version 8)
Quarter: 2023Q4

REPORT INFORMATION
  Report Type: Report from Study
  Country: CA (occurrence: CA)
  Receive Date: 20230913
  Receipt Date: 20231229
  Transmission Date: 20240110
  Serious: Yes (Hospitalization, Other)
  Sender: FDA-Public Use
  Company Number: CA-HLS-202302152

PATIENT
  Age: 67 Year
  Sex: Male

DRUGS (1)
  1. CLOZARIL [Suspect]
     Active Substance: CLOZAPINE
     Indication: Product used for unknown indication
     Route: 048
     Dates: start: 20140102

REACTIONS (12)
  - Electrocardiogram abnormal [Unknown]
  - Cerebral infarction [Unknown]
  - Altered state of consciousness [Unknown]
  - Chronic kidney disease [Unknown]
  - Flatulence [Unknown]
  - Colorectal cancer [Unknown]
  - Blood creatinine increased [Unknown]
  - Glomerular filtration rate decreased [Unknown]
  - Ischaemic stroke [Unknown]
  - Neutropenia [Unknown]
  - Porcelain gallbladder [Unknown]
  - Supraventricular tachycardia [Unknown]

NARRATIVE: CASE EVENT DATE: 20231205
